FAERS Safety Report 6669710-X (Version None)
Quarter: 2010Q2

REPORT INFORMATION
  Report Type: 
  Country: None (occurrence: None)
  Receive Date: 20100406
  Receipt Date: 20100329
  Transmission Date: 20101027
  Serious: Yes (Other)
  Sender: FDA-Public Use
  Company Number: BR-ABBOTT-10P-020-0635209-00

PATIENT
  Sex: Female
  Weight: 68 kg

DRUGS (7)
  1. HUMIRA [Suspect]
     Indication: RHEUMATOID ARTHRITIS
     Route: 058
  2. PREDNISONE 6MG/MELOXICAM 7.5MG/RANITIDINE 200MG [Concomitant]
     Indication: RHEUMATOID ARTHRITIS
     Route: 048
  3. TECNOMET [Concomitant]
     Indication: RHEUMATOID ARTHRITIS
     Route: 048
  4. ATACAND [Concomitant]
     Indication: HYPERTENSION
     Route: 048
  5. CALCIUM +VIT D [Concomitant]
     Indication: RHEUMATOID ARTHRITIS
     Route: 048
  6. HYDROCHLOROTHIAZIDE [Concomitant]
     Indication: DIURETIC THERAPY
     Route: 048
  7. AAS [Concomitant]
     Indication: CARDIAC DISORDER
     Route: 048

REACTIONS (6)
  - DIZZINESS [None]
  - FATIGUE [None]
  - INJECTION SITE PAIN [None]
  - SYNCOPE [None]
  - TACHYCARDIA [None]
  - WEIGHT INCREASED [None]
